FAERS Safety Report 5269027-4 (Version None)
Quarter: 2007Q1

REPORT INFORMATION
  Report Type: 
  Country: None (occurrence: None)
  Receive Date: 20070319
  Receipt Date: 20070308
  Transmission Date: 20070707
  Serious: Yes (Death, Hospitalization)
  Sender: FDA-Public Use
  Company Number: FR-JNJFOC-20070302937

PATIENT
  Age: 81 Year
  Sex: Male

DRUGS (18)
  1. CONTRAMAL [Suspect]
     Indication: DRUG USE FOR UNKNOWN INDICATION
     Route: 048
  2. OXYCONTIN [Suspect]
     Indication: DRUG USE FOR UNKNOWN INDICATION
     Route: 048
  3. LYRICA [Suspect]
     Indication: DRUG USE FOR UNKNOWN INDICATION
     Route: 048
  4. OXYNORM [Suspect]
     Indication: DRUG USE FOR UNKNOWN INDICATION
     Route: 065
  5. FONZYLANE [Concomitant]
     Route: 065
  6. BISOPROLOL [Concomitant]
     Route: 065
  7. FENOFIBRATE [Concomitant]
     Route: 065
  8. PREVISCAN [Concomitant]
     Route: 065
  9. ZESTRIL [Concomitant]
     Route: 065
  10. FUROSEMIDE [Concomitant]
     Route: 048
  11. AMLODIPINE [Concomitant]
     Route: 065
  12. DIAMICRON [Concomitant]
     Route: 065
  13. JOSIR [Concomitant]
     Route: 065
  14. ZOLPIDEM TARTRATE [Concomitant]
     Route: 065
  15. PROSCAR [Concomitant]
     Route: 065
  16. ACTRAPID [Concomitant]
     Route: 065
  17. MOPRAL [Concomitant]
     Route: 065
  18. CALCIPARINE [Concomitant]
     Route: 065

REACTIONS (8)
  - DEPRESSED LEVEL OF CONSCIOUSNESS [None]
  - DYSARTHRIA [None]
  - GASTRIC DISORDER [None]
  - GLOSSOPTOSIS [None]
  - HYPERTONIA [None]
  - HYPOTENSION [None]
  - MIOSIS [None]
  - MYOCLONUS [None]
